FAERS Safety Report 10515699 (Version 2)
Quarter: 2014Q4

REPORT INFORMATION
  Report Type: Spontaneous
  Country: US (occurrence: US)
  Receive Date: 20141014
  Receipt Date: 20141111
  Transmission Date: 20150528
  Serious: Yes (Hospitalization)
  Sender: FDA-Public Use
  Company Number: US-TEVA-514914USA

PATIENT
  Age: 75 Year
  Sex: Male
  Weight: 74.46 kg

DRUGS (1)
  1. SYNRIBO [Suspect]
     Active Substance: OMACETAXINE MEPESUCCINATE
     Indication: CHRONIC MYELOID LEUKAEMIA
     Route: 065
     Dates: start: 20141006

REACTIONS (7)
  - Nausea [Recovered/Resolved]
  - Dyspnoea [Unknown]
  - Bone marrow failure [Unknown]
  - Platelet count decreased [Recovered/Resolved]
  - Oral herpes [Unknown]
  - Blood count abnormal [Recovered/Resolved]
  - Alopecia [Unknown]

NARRATIVE: CASE EVENT DATE: 20141008
